FAERS Safety Report 8134167-9 (Version None)
Quarter: 2012Q1

REPORT INFORMATION
  Report Type: 
  Country: None (occurrence: None)
  Receive Date: 20120207
  Receipt Date: 20120126
  Transmission Date: 20120608
  Serious: Yes (Death, Hospitalization, Other)
  Sender: FDA-Public Use
  Company Number: 2011SP045391

PATIENT
  Age: 60 Year
  Sex: Female
  Weight: 45 kg

DRUGS (16)
  1. FUROSEMIDE [Concomitant]
  2. ALBUMIN (HUMAN) [Concomitant]
  3. POSACONAZOLE [Suspect]
     Indication: ANTIFUNGAL TREATMENT
     Dosage: 200 MG;QID;PO
     Route: 048
     Dates: start: 20100429, end: 20100506
  4. POSACONAZOLE [Suspect]
     Indication: PULMONARY MYCOSIS
     Dosage: 200 MG;QID;PO
     Route: 048
     Dates: start: 20100429, end: 20100506
  5. POSACONAZOLE [Suspect]
     Indication: DRUG THERAPY
     Dosage: 200 MG;QID;PO
     Route: 048
     Dates: start: 20100429, end: 20100506
  6. POSACONAZOLE [Suspect]
     Indication: LUNG INFILTRATION
     Dosage: 200 MG;QID;PO
     Route: 048
     Dates: start: 20100429, end: 20100506
  7. SPIRONOLACTONE [Concomitant]
  8. HYDROXYUREA [Concomitant]
  9. KONAKION [Concomitant]
  10. TAZOBACTAM [Concomitant]
  11. HEPARIN [Concomitant]
  12. VANCOMYCIN [Concomitant]
  13. LEVOFLOXACIN [Concomitant]
  14. ACYCLOVIR [Concomitant]
  15. LEVOTHYROXINE SODIUM [Concomitant]
  16. RASBURICASE [Concomitant]

REACTIONS (6)
  - RESPIRATORY FAILURE [None]
  - ACUTE MYELOID LEUKAEMIA [None]
  - DISEASE PROGRESSION [None]
  - HEPATIC FAILURE [None]
  - RENAL FAILURE [None]
  - LUNG INFILTRATION [None]
